FAERS Safety Report 7812593-2 (Version None)
Quarter: 2011Q4

REPORT INFORMATION
  Report Type: 
  Country: None (occurrence: None)
  Receive Date: 20111013
  Receipt Date: 20110928
  Transmission Date: 20120403
  Serious: Yes (Hospitalization)
  Sender: FDA-Public Use
  Company Number: NL-WATSON-2011-16126

PATIENT
  Age: 30 Year
  Sex: Female

DRUGS (1)
  1. BETAMETHASONE [Suspect]
     Indication: PREMATURE LABOUR
     Dosage: 24 MG OVER 2 DAYS
     Route: 030

REACTIONS (5)
  - PSYCHOTIC DISORDER [None]
  - DELIRIUM [None]
  - MATERNAL EXPOSURE DURING PREGNANCY [None]
  - HALLUCINATION [None]
  - DELUSION [None]
